FAERS Safety Report 8069643-0 (Version None)
Quarter: 2012Q1

REPORT INFORMATION
  Report Type: 
  Country: None (occurrence: None)
  Receive Date: 20120125
  Receipt Date: 20120116
  Transmission Date: 20120608
  Serious: Yes (Hospitalization)
  Sender: FDA-Public Use
  Company Number: US-JNJFOC-20120106171

PATIENT
  Sex: Female
  Weight: 77.6 kg

DRUGS (5)
  1. MERCAPTOPURINE [Concomitant]
  2. REMICADE [Suspect]
     Indication: CROHN'S DISEASE
     Route: 042
     Dates: start: 20100421
  3. ALLOPURINOL [Concomitant]
  4. ZANTAC [Concomitant]
  5. REMICADE [Suspect]
     Route: 042
     Dates: start: 20111013

REACTIONS (4)
  - DIARRHOEA [None]
  - VOMITING [None]
  - GASTRITIS [None]
  - CLOSTRIDIAL INFECTION [None]
